FAERS Safety Report 18475656 (Version 1)
Quarter: 2020Q4

REPORT INFORMATION
  Report Type: Report from Study
  Country: CA (occurrence: CA)
  Receive Date: 20201106
  Receipt Date: 20201106
  Transmission Date: 20210114
  Serious: Yes (Hospitalization, Other)
  Sender: FDA-Public Use
  Company Number: CA-BAUSCH-BL-2020-031627

PATIENT
  Age: 74 Year
  Sex: Male

DRUGS (19)
  1. BISOPROLOL [Suspect]
     Active Substance: BISOPROLOL
     Indication: PRODUCT USED FOR UNKNOWN INDICATION
     Route: 065
  2. ASPIRIN. [Concomitant]
     Active Substance: ASPIRIN
     Indication: PRODUCT USED FOR UNKNOWN INDICATION
     Route: 048
  3. TESTOSTERONE. [Concomitant]
     Active Substance: TESTOSTERONE
     Indication: PRODUCT USED FOR UNKNOWN INDICATION
     Route: 048
  4. OMEPRAZOLE. [Concomitant]
     Active Substance: OMEPRAZOLE
     Indication: PRODUCT USED FOR UNKNOWN INDICATION
     Route: 048
  5. VALSARTAN. [Concomitant]
     Active Substance: VALSARTAN
     Indication: PRODUCT USED FOR UNKNOWN INDICATION
     Route: 048
  6. ATORVASTATIN CALCIUM. [Suspect]
     Active Substance: ATORVASTATIN CALCIUM
     Indication: PRODUCT USED FOR UNKNOWN INDICATION
     Route: 048
  7. ATORVASTATIN CALCIUM. [Suspect]
     Active Substance: ATORVASTATIN CALCIUM
     Route: 065
  8. ACETAMINOPHEN;CODEINE PHOSPHATE [Concomitant]
     Active Substance: ACETAMINOPHEN\CODEINE PHOSPHATE
     Indication: PRODUCT USED FOR UNKNOWN INDICATION
  9. SANDOSTATIN [Suspect]
     Active Substance: OCTREOTIDE ACETATE
     Route: 030
  10. AMITRIPTYLINE [Concomitant]
     Active Substance: AMITRIPTYLINE
     Indication: PRODUCT USED FOR UNKNOWN INDICATION
     Route: 048
  11. ESOMEPRAZOLE. [Concomitant]
     Active Substance: ESOMEPRAZOLE MAGNESIUM
     Indication: PRODUCT USED FOR UNKNOWN INDICATION
     Dosage: DOSAGE FORM: NOT SPECIFIED
     Route: 048
  12. CILAZAPRIL [Concomitant]
     Active Substance: CILAZAPRIL ANHYDROUS
     Indication: PRODUCT USED FOR UNKNOWN INDICATION
  13. NAPROXEN. [Concomitant]
     Active Substance: NAPROXEN
     Indication: PRODUCT USED FOR UNKNOWN INDICATION
  14. TAMSULOSIN [Concomitant]
     Active Substance: TAMSULOSIN
     Indication: PRODUCT USED FOR UNKNOWN INDICATION
     Route: 048
  15. SANDOSTATIN [Suspect]
     Active Substance: OCTREOTIDE ACETATE
     Indication: ACROMEGALY
     Dosage: DOSAGE FORM: NOT SPECIFIED
     Route: 030
  16. APIXABAN [Concomitant]
     Active Substance: APIXABAN
     Indication: PRODUCT USED FOR UNKNOWN INDICATION
     Route: 048
  17. HYDROMORPHONE [Concomitant]
     Active Substance: HYDROMORPHONE
     Indication: PRODUCT USED FOR UNKNOWN INDICATION
     Dosage: DOSAGE FORM: NOT SPECIFIED
     Route: 048
  18. METOPROLOL TARTRATE. [Concomitant]
     Active Substance: METOPROLOL TARTRATE
     Indication: PRODUCT USED FOR UNKNOWN INDICATION
  19. METFORMIN [Suspect]
     Active Substance: METFORMIN HYDROCHLORIDE
     Indication: PRODUCT USED FOR UNKNOWN INDICATION
     Route: 048

REACTIONS (38)
  - Arthralgia [Not Recovered/Not Resolved]
  - Arthritis [Not Recovered/Not Resolved]
  - Atrial flutter [Not Recovered/Not Resolved]
  - Herpes zoster [Not Recovered/Not Resolved]
  - Pyrexia [Not Recovered/Not Resolved]
  - Pruritus [Not Recovered/Not Resolved]
  - Product quality issue [Not Recovered/Not Resolved]
  - Concomitant disease aggravated [Not Recovered/Not Resolved]
  - Photosensitivity reaction [Not Recovered/Not Resolved]
  - Blood pressure systolic increased [Not Recovered/Not Resolved]
  - Cardiac failure congestive [Not Recovered/Not Resolved]
  - Heart rate increased [Not Recovered/Not Resolved]
  - Peripheral swelling [Not Recovered/Not Resolved]
  - Pneumonia [Not Recovered/Not Resolved]
  - Underdose [Not Recovered/Not Resolved]
  - Back pain [Not Recovered/Not Resolved]
  - Cholelithiasis [Not Recovered/Not Resolved]
  - Diabetes mellitus [Not Recovered/Not Resolved]
  - Fall [Not Recovered/Not Resolved]
  - Neck pain [Not Recovered/Not Resolved]
  - Weight decreased [Not Recovered/Not Resolved]
  - Abdominal pain [Not Recovered/Not Resolved]
  - Wrong technique in product usage process [Not Recovered/Not Resolved]
  - Gastrooesophageal reflux disease [Not Recovered/Not Resolved]
  - Hyperhidrosis [Not Recovered/Not Resolved]
  - Pain [Not Recovered/Not Resolved]
  - Hypotension [Not Recovered/Not Resolved]
  - Fatigue [Not Recovered/Not Resolved]
  - Dehydration [Not Recovered/Not Resolved]
  - Blood pressure diastolic decreased [Not Recovered/Not Resolved]
  - Mitral valve incompetence [Not Recovered/Not Resolved]
  - Malaise [Not Recovered/Not Resolved]
  - Eczema [Not Recovered/Not Resolved]
  - Injection site mass [Not Recovered/Not Resolved]
  - Rash [Not Recovered/Not Resolved]
  - Body temperature decreased [Not Recovered/Not Resolved]
  - Asthenia [Not Recovered/Not Resolved]
  - Needle issue [Not Recovered/Not Resolved]
